FAERS Safety Report 5234799-1 (Version None)
Quarter: 2007Q1

REPORT INFORMATION
  Report Type: 
  Country: None (occurrence: None)
  Receive Date: 20070209
  Receipt Date: 20070130
  Transmission Date: 20070707
  Serious: Yes (Hospitalization, Other)
  Sender: FDA-Public Use
  Company Number: DE-ABBOTT-07P-062-0357840-00

PATIENT
  Age: 64 Year
  Sex: Female

DRUGS (7)
  1. HUMIRA [Suspect]
     Indication: DRUG USE FOR UNKNOWN INDICATION
     Dates: start: 20050201, end: 20050501
  2. PENICILLAMINE [Suspect]
     Indication: DRUG USE FOR UNKNOWN INDICATION
  3. PENICILLAMINE [Suspect]
  4. ETANERCEPT [Suspect]
     Indication: DRUG USE FOR UNKNOWN INDICATION
     Dates: start: 20040801, end: 20041201
  5. METHOTREXATE SODIUM [Concomitant]
     Indication: DRUG USE FOR UNKNOWN INDICATION
     Dates: start: 20040801, end: 20041201
  6. METHOTREXATE SODIUM [Concomitant]
  7. METHOTREXATE SODIUM [Concomitant]

REACTIONS (4)
  - BREAST CANCER [None]
  - IMPAIRED HEALING [None]
  - METASTASES TO LIVER [None]
  - STAPHYLOCOCCAL INFECTION [None]
